FAERS Safety Report 5987102-3 (Version None)
Quarter: 2008Q4

REPORT INFORMATION
  Report Type: 
  Country: None (occurrence: None)
  Receive Date: 20081209
  Receipt Date: 20081201
  Transmission Date: 20090506
  Serious: Yes (Hospitalization)
  Sender: FDA-Public Use
  Company Number: GR-ABBOTT-08P-066-0485193-00

PATIENT
  Sex: Female
  Weight: 41 kg

DRUGS (10)
  1. ZEMPLAR [Suspect]
     Indication: HYPERPARATHYROIDISM SECONDARY
     Dosage: 1 AMPOULE/HEMODIALYSIS
     Route: 042
     Dates: start: 20070525
  2. RETACRIT [Concomitant]
     Indication: HAEMATOCRIT DECREASED
     Dosage: 1 INJECTION/HEMODIALYSIS
     Dates: start: 20080901
  3. SACCHARATED IRON OXIDE [Concomitant]
     Indication: IRON DEFICIENCY ANAEMIA
     Route: 042
  4. LEVOCARNITINE [Concomitant]
     Indication: CARNITINE
     Dosage: 2X3 /HEMODIALYSIS
     Route: 042
  5. CERNEVIT-12 [Concomitant]
     Indication: DRUG USE FOR UNKNOWN INDICATION
     Dosage: 1/HEMODIALYSIS
     Route: 042
  6. FORSENOL [Concomitant]
     Indication: HYPERPHOSPHATAEMIA
     Dosage: 1X3 DAILY
     Route: 048
  7. CLOPIDOGREL BISULFATE [Concomitant]
     Indication: THROMBOSIS PROPHYLAXIS
     Dosage: 1X1 DAILY
     Route: 048
  8. FOLIC ACID [Concomitant]
     Indication: FOLATE DEFICIENCY
     Dosage: 1X1  DAILY
     Route: 048
  9. QUINAPRIL HCL [Concomitant]
     Indication: HYPERTENSION
     Dosage: 1X1 DAILY
     Route: 048
  10. LERCANIDIPINE [Concomitant]
     Indication: HYPERTENSION
     Dosage: 1X1 DAILY
     Route: 048

REACTIONS (2)
  - FALL [None]
  - POSTOPERATIVE WOUND INFECTION [None]
